FAERS Safety Report 13597680 (Version 1)
Quarter: 2017Q2

REPORT INFORMATION
  Report Type: Spontaneous
  Country: US (occurrence: US)
  Receive Date: 20170531
  Receipt Date: 20170531
  Transmission Date: 20170830
  Serious: Yes (Disabling, Other)
  Sender: FDA-Public Use
  Company Number: None

PATIENT
  Age: 68 Year
  Sex: Female
  Weight: 79.38 kg

DRUGS (6)
  1. CLONAZEPAM. [Concomitant]
     Active Substance: CLONAZEPAM
  2. GABAPENTIN 600MG TAB GLE [Suspect]
     Active Substance: GABAPENTIN
     Indication: ERYTHROMELALGIA
     Dosage: 900MG - 3X DAILY,  MOUTH?
     Route: 048
     Dates: start: 20170325, end: 20170502
  3. VITAMIN B12 [Concomitant]
     Active Substance: CYANOCOBALAMIN
  4. MS CONTIN [Concomitant]
     Active Substance: MORPHINE SULFATE
  5. FLAX SEED [Concomitant]
     Active Substance: FLAX SEED
  6. LEVOTHYROXIN [Concomitant]
     Active Substance: LEVOTHYROXINE

REACTIONS (2)
  - Product quality issue [None]
  - Pain [None]

NARRATIVE: CASE EVENT DATE: 20170410
